FAERS Safety Report 20705637 (Version 1)
Quarter: 2022Q2

REPORT INFORMATION
  Report Type: Spontaneous
  Country: US (occurrence: None)
  Receive Date: 20220412
  Receipt Date: 20220412
  Transmission Date: 20220721
  Serious: Yes (Other)
  Sender: FDA-Public Use
  Company Number: None

PATIENT
  Age: 42 Year
  Sex: Female
  Weight: 157.5 kg

DRUGS (39)
  1. BUPRENORPHINE HYDROCHLORIDE\NALOXONE HYDROCHLORIDE [Suspect]
     Active Substance: BUPRENORPHINE HYDROCHLORIDE\NALOXONE HYDROCHLORIDE
     Indication: Fibromyalgia
     Dosage: OTHER QUANTITY : 2 FILMS, SUBLINGUAL;?OTHER FREQUENCY : DISSOLVE 2.75X/DAY;?
     Route: 060
     Dates: start: 20220330
  2. ALBUTEROL SULFATE [Concomitant]
     Active Substance: ALBUTEROL SULFATE
  3. Amitripyline hydrochloride [Concomitant]
  4. BD pen needles Nano [Concomitant]
  5. Breztri aerosphere (budesonide, glycopyrrolate and formoterol fumara [Concomitant]
  6. BUPRENORPHINE\NALOXONE [Concomitant]
     Active Substance: BUPRENORPHINE\NALOXONE
  7. Bupropion Hydrochloride (HCL) [Concomitant]
  8. Cyclobenzaprine Hydrochloride (HCL [Concomitant]
  9. DICLOFENAC SODIUM [Concomitant]
     Active Substance: DICLOFENAC SODIUM
  10. DOXYCYCLINE HYCLATE [Concomitant]
     Active Substance: DOXYCYCLINE HYCLATE
  11. ERGOCALCIFEROL [Concomitant]
     Active Substance: ERGOCALCIFEROL
  12. FINASTERIDE [Concomitant]
     Active Substance: FINASTERIDE
  13. GABAPENTIN [Concomitant]
     Active Substance: GABAPENTIN
  14. KETOROLAC [Concomitant]
     Active Substance: KETOROLAC TROMETHAMINE
  15. LEVOCETIRIZINE DIHYDROCHLORIDE [Concomitant]
     Active Substance: LEVOCETIRIZINE DIHYDROCHLORIDE
  16. LEVOTHYROXINE SODIUM [Concomitant]
     Active Substance: LEVOTHYROXINE SODIUM
  17. MONTELUKAST SODIUM [Concomitant]
     Active Substance: MONTELUKAST SODIUM
  18. Novolog Kwikpen [Concomitant]
  19. PREGABALIN [Concomitant]
     Active Substance: PREGABALIN
  20. Ropinirole Hydrochloride (HCL) [Concomitant]
  21. Spironolactone w/ hydrochlorothiazide (HCTZ [Concomitant]
  22. SUMATRIPTAN [Concomitant]
     Active Substance: SUMATRIPTAN
  23. Tizanidine Hydrochloride (HCL) [Concomitant]
  24. Tramadol Hydrochloride (HCL) [Concomitant]
  25. TRESIBA [Concomitant]
     Active Substance: INSULIN DEGLUDEC
  26. TRULICITY [Concomitant]
     Active Substance: DULAGLUTIDE
  27. VYVANSE [Concomitant]
     Active Substance: LISDEXAMFETAMINE DIMESYLATE
  28. CANNABIS SATIVA SUBSP. INDICA TOP [Concomitant]
     Active Substance: CANNABIS SATIVA SUBSP. INDICA TOP
  29. TYLENOL [Concomitant]
     Active Substance: ACETAMINOPHEN
  30. IBUPROFEN [Concomitant]
     Active Substance: IBUPROFEN
  31. Apple cider vinegar with the mother capsules [Concomitant]
  32. Wholesome Wellness Women^s raw probiotic 100 billion CFU capsules [Concomitant]
  33. Viva naturals probiotics for women 50 billion [Concomitant]
  34. VITAMIN B COMPLEX [Concomitant]
     Active Substance: CYANOCOBALAMIN\DEXPANTHENOL\NIACINAMIDE\PYRIDOXINE HYDROCHLORIDE\RIBOFLAVIN 5^-PHOSPHATE SODIUM\THIA
  35. Mini fish oil gel capsules [Concomitant]
  36. ZINC [Concomitant]
     Active Substance: ZINC
  37. POTASSIUM [Concomitant]
     Active Substance: POTASSIUM
  38. Garlic extract capsules [Concomitant]
  39. Collagen tabs [Concomitant]

REACTIONS (13)
  - Dizziness [None]
  - Visual impairment [None]
  - Vitreous floaters [None]
  - Migraine [None]
  - Sleep attacks [None]
  - Fall [None]
  - Hallucination [None]
  - Muscle twitching [None]
  - Dry mouth [None]
  - Dysphagia [None]
  - Cough [None]
  - Middle insomnia [None]
  - Somnambulism [None]

NARRATIVE: CASE EVENT DATE: 20220405
